FAERS Safety Report 6397591-0 (Version None)
Quarter: 2009Q4

REPORT INFORMATION
  Report Type: 
  Country: None (occurrence: None)
  Receive Date: 20091012
  Receipt Date: 20091006
  Transmission Date: 20100525
  Serious: Yes (Life-Threatening, Hospitalization, Other)
  Sender: FDA-Public Use
  Company Number: US-ABBOTT-09P-163-0588003-00

PATIENT
  Sex: Male
  Weight: 94.3 kg

DRUGS (38)
  1. SYNTHROID [Suspect]
     Indication: HYPOTHYROIDISM
     Route: 048
  2. ALEFACEPT [Suspect]
     Indication: DRUG USE FOR UNKNOWN INDICATION
     Dosage: 1 DAY
     Route: 042
     Dates: start: 20090709, end: 20090709
  3. ALEFACEPT [Suspect]
     Route: 042
     Dates: start: 20090712, end: 20090712
  4. ALEFACEPT [Suspect]
     Route: 058
     Dates: start: 20090716, end: 20090719
  5. PROGRAF [Suspect]
     Indication: DRUG USE FOR UNKNOWN INDICATION
     Route: 048
     Dates: start: 20090709, end: 20090720
  6. PROGRAF [Suspect]
     Route: 048
     Dates: start: 20090724, end: 20090726
  7. PROGRAF [Suspect]
     Route: 048
     Dates: start: 20090726
  8. PROGRAF [Suspect]
  9. VALCYTE [Suspect]
     Indication: DRUG USE FOR UNKNOWN INDICATION
     Route: 048
     Dates: start: 20090709
  10. PLAVIX [Suspect]
     Indication: DRUG USE FOR UNKNOWN INDICATION
     Route: 048
     Dates: start: 20040101
  11. ASPIRIN [Suspect]
     Indication: DRUG USE FOR UNKNOWN INDICATION
     Dosage: UID/QD
     Route: 048
  12. ASPIRIN [Suspect]
     Dosage: UID/QD
  13. BACTRIM [Suspect]
     Indication: URINARY TRACT INFECTION
     Dosage: 1 DF, QOD
     Route: 048
     Dates: start: 20090709
  14. HEPARIN [Suspect]
     Indication: DRUG USE FOR UNKNOWN INDICATION
     Dates: start: 20090710, end: 20090715
  15. HEPARIN [Suspect]
     Dosage: UID/QD
     Dates: start: 20090715, end: 20090715
  16. PREDNISONE [Concomitant]
     Indication: DRUG USE FOR UNKNOWN INDICATION
     Dates: start: 20090709, end: 20090710
  17. PREDNISONE [Concomitant]
     Route: 048
     Dates: start: 20090720
  18. AMBIEN [Concomitant]
     Indication: DRUG USE FOR UNKNOWN INDICATION
  19. PRILOSEC [Concomitant]
     Indication: DRUG USE FOR UNKNOWN INDICATION
  20. METOPROLOL [Concomitant]
     Indication: DRUG USE FOR UNKNOWN INDICATION
  21. NORVASC [Concomitant]
     Indication: DRUG USE FOR UNKNOWN INDICATION
  22. LANTUS [Concomitant]
     Indication: DRUG USE FOR UNKNOWN INDICATION
  23. CALCIUM CARBONATE [Concomitant]
     Indication: DRUG USE FOR UNKNOWN INDICATION
  24. DILTIAZEM [Concomitant]
     Indication: DRUG USE FOR UNKNOWN INDICATION
  25. FERROUS GLUCONATE [Concomitant]
     Indication: DRUG USE FOR UNKNOWN INDICATION
  26. LABETALOL HCL [Concomitant]
     Indication: DRUG USE FOR UNKNOWN INDICATION
  27. NEPHROCAPS [Concomitant]
     Indication: DRUG USE FOR UNKNOWN INDICATION
  28. RENAGEL [Concomitant]
     Indication: DRUG USE FOR UNKNOWN INDICATION
  29. NOVOLOG [Concomitant]
     Indication: DRUG USE FOR UNKNOWN INDICATION
  30. ROSUVASTATIN CALCIUM [Concomitant]
     Indication: DRUG USE FOR UNKNOWN INDICATION
  31. DILAUDID [Concomitant]
     Indication: DRUG USE FOR UNKNOWN INDICATION
  32. DOPAMINE HCL [Concomitant]
     Indication: DRUG USE FOR UNKNOWN INDICATION
  33. AVAPRO [Concomitant]
     Indication: DRUG USE FOR UNKNOWN INDICATION
  34. SOLU-MEDROL [Concomitant]
     Indication: DRUG USE FOR UNKNOWN INDICATION
     Dates: start: 20090711
  35. SOLU-MEDROL [Concomitant]
     Route: 042
     Dates: start: 20090721
  36. SOLU-MEDROL [Concomitant]
     Route: 042
     Dates: start: 20090722, end: 20090723
  37. SOLU-MEDROL [Concomitant]
     Route: 042
     Dates: start: 20090725, end: 20090727
  38. HYDRALAZINE HCL [Concomitant]
     Indication: DRUG USE FOR UNKNOWN INDICATION

REACTIONS (4)
  - HAEMOLYSIS [None]
  - HAEMOLYTIC ANAEMIA [None]
  - THROMBOCYTOPENIA [None]
  - TUBULOINTERSTITIAL NEPHRITIS [None]
